FAERS Safety Report 9995405 (Version 1)
Quarter: 2014Q1

REPORT INFORMATION
  Report Type: Spontaneous
  Country: US (occurrence: None)
  Receive Date: 20140225
  Receipt Date: 20140225
  Transmission Date: 20141002
  Serious: Yes (Hospitalization)
  Sender: FDA-Public Use
  Company Number: 2013-185

PATIENT
  Age: 69 Year
  Sex: Female

DRUGS (2)
  1. PRIALT [Suspect]
     Indication: SPINAL LAMINECTOMY
     Dosage: UNK MCG, ONCE/HOUR , INTRATHECAL
     Route: 037
  2. PRIALT [Suspect]
     Indication: SPINAL PAIN
     Dosage: UNK MCG, ONCE/HOUR , INTRATHECAL
     Route: 037

REACTIONS (4)
  - Mental status changes [None]
  - Psychomotor hyperactivity [None]
  - Confusional state [None]
  - Disorientation [None]
